FAERS Safety Report 6357262-3 (Version None)
Quarter: 2009Q3

REPORT INFORMATION
  Report Type: 
  Country: None (occurrence: None)
  Receive Date: 20090916
  Receipt Date: 20090903
  Transmission Date: 20100115
  Serious: Yes (Other)
  Sender: FDA-Public Use
  Company Number: PHHY2009BR38182

PATIENT
  Sex: Female

DRUGS (2)
  1. ENABLEX [Suspect]
     Dosage: 7.5 MG, UNK
     Route: 048
  2. ENABLEX [Suspect]
     Dosage: 15 MG, UNK
     Route: 048

REACTIONS (3)
  - DRUG INEFFECTIVE [None]
  - DYSURIA [None]
  - POLLAKIURIA [None]
